FAERS Safety Report 21507404 (Version 1)
Quarter: 2022Q4

REPORT INFORMATION
  Report Type: Report from Study
  Country: US (occurrence: US)
  Receive Date: 20221026
  Receipt Date: 20221026
  Transmission Date: 20230113
  Serious: Yes (Other)
  Sender: FDA-Public Use
  Company Number: US-ABBVIE-4173729

PATIENT
  Sex: Male

DRUGS (1)
  1. IMBRUVICA [Suspect]
     Active Substance: IBRUTINIB
     Indication: Chronic lymphocytic leukaemia
     Route: 048

REACTIONS (5)
  - Head and neck cancer [Recovered/Resolved]
  - Increased tendency to bruise [Recovering/Resolving]
  - Osteoarthritis [Recovered/Resolved]
  - Onychoclasis [Recovering/Resolving]
  - Post procedural haemorrhage [Recovered/Resolved]
